FAERS Safety Report 24714581 (Version 1)
Quarter: 2024Q4

REPORT INFORMATION
  Report Type: Spontaneous
  Country: GB (occurrence: GB)
  Receive Date: 20241209
  Receipt Date: 20241209
  Transmission Date: 20250115
  Serious: Yes (Other)
  Sender: RANBAXY
  Company Number: GB-SUN PHARMACEUTICAL INDUSTRIES LTD-2024RR-481759

PATIENT
  Age: 19 Year
  Sex: Female
  Weight: 49 kg

DRUGS (3)
  1. CITALOPRAM [Suspect]
     Active Substance: CITALOPRAM
     Indication: Adverse drug reaction
     Dosage: 40 MILLIGRAM
     Route: 065
     Dates: start: 20200202, end: 20231028
  2. CITALOPRAM [Suspect]
     Active Substance: CITALOPRAM
     Dosage: 20 MILLIGRAM
     Route: 065
  3. CITALOPRAM [Suspect]
     Active Substance: CITALOPRAM
     Dosage: 10 MILLIGRAM
     Route: 065

REACTIONS (3)
  - Antidepressant discontinuation syndrome [Recovered/Resolved]
  - Sexual dysfunction [Recovered/Resolved with Sequelae]
  - Female sexual dysfunction [Recovered/Resolved with Sequelae]

NARRATIVE: CASE EVENT DATE: 20200202
